FAERS Safety Report 9240272 (Version 1)
Quarter: 2013Q1

REPORT INFORMATION
  Report Type: Spontaneous
  Country: US (occurrence: None)
  Receive Date: 20121119
  Receipt Date: 20121119
  Transmission Date: 20140127
  Serious: Yes (Other)
  Sender: FDA-Public Use
  Company Number: 068739

PATIENT
  Sex: Male
  Weight: 102.1 kg

DRUGS (2)
  1. LACOSAMIDE [Suspect]
     Indication: CONVULSION
     Route: 048
     Dates: start: 201104
  2. LEVETIRACETAM [Concomitant]

REACTIONS (2)
  - Convulsion [None]
  - Aura [None]
